FAERS Safety Report 5692279-3 (Version None)
Quarter: 2008Q2

REPORT INFORMATION
  Report Type: 
  Country: None (occurrence: None)
  Receive Date: 20080402
  Receipt Date: 20080324
  Transmission Date: 20081010
  Serious: Yes (Other)
  Sender: FDA-Public Use
  Company Number: US-PFIZER INC-2008026803

PATIENT
  Sex: Female

DRUGS (2)
  1. DEPO-MEDROL [Suspect]
     Indication: BACK PAIN
  2. LIDOCAINE [Concomitant]

REACTIONS (4)
  - ANGIOPATHY [None]
  - CONTUSION [None]
  - DRUG ADMINISTRATION ERROR [None]
  - PAIN IN EXTREMITY [None]
